FAERS Safety Report 24847063 (Version 1)
Quarter: 2025Q1

REPORT INFORMATION
  Report Type: Spontaneous
  Country: US (occurrence: US)
  Receive Date: 20250115
  Receipt Date: 20250115
  Transmission Date: 20250408
  Serious: Yes (Hospitalization, Other)
  Sender: SANOFI AVENTIS
  Company Number: US-SA-2024SA239457

PATIENT
  Age: 64 Year
  Sex: Male
  Weight: 78.47 kg

DRUGS (1)
  1. SARCLISA [Suspect]
     Active Substance: ISATUXIMAB-IRFC
     Indication: Plasma cell myeloma
     Dosage: 785 MG, QOW
     Route: 042
     Dates: start: 20240821

REACTIONS (1)
  - Pneumonia [Unknown]
